FAERS Safety Report 10639544 (Version 4)
Quarter: 2015Q1

REPORT INFORMATION
  Report Type: Spontaneous
  Country: JP (occurrence: JP)
  Receive Date: 20141209
  Receipt Date: 20150226
  Transmission Date: 20150720
  Serious: Yes (Other)
  Sender: FDA-Public Use
  Company Number: JP-009507513-1412JPN002696

PATIENT
  Age: 69 Year
  Sex: Male
  Weight: 52 kg

DRUGS (6)
  1. MYSLEE [Concomitant]
     Active Substance: ZOLPIDEM TARTRATE
     Dosage: DAILY DOSAGE UNKNOWN
  2. BELSOMRA [Suspect]
     Active Substance: SUVOREXANT
     Indication: INSOMNIA
     Dosage: 20 MG, QD
     Route: 048
     Dates: start: 20141201, end: 20141201
  3. WYPAX [Suspect]
     Active Substance: LORAZEPAM
     Indication: NEUROSIS
     Dosage: 1 MG, QD
     Route: 048
  4. ROHYPNOL [Concomitant]
     Active Substance: FLUNITRAZEPAM
     Indication: INSOMNIA
     Dosage: DAILY DOSAGE UNKNOWN
  5. HALCION [Concomitant]
     Active Substance: TRIAZOLAM
     Indication: INSOMNIA
     Dosage: DAILY DOSAGE UNKNOWN
  6. SILECE [Suspect]
     Active Substance: FLUNITRAZEPAM
     Indication: INSOMNIA
     Dosage: 2 MG, QD
     Route: 048

REACTIONS (7)
  - Palpitations [Recovered/Resolved]
  - Arrhythmia [Recovered/Resolved]
  - Poor quality sleep [Recovered/Resolved]
  - Hyperhidrosis [Recovered/Resolved]
  - Overdose [Unknown]
  - Insomnia [Recovered/Resolved]
  - Tremor [Recovered/Resolved]

NARRATIVE: CASE EVENT DATE: 20141201
